FAERS Safety Report 7680260-4 (Version None)
Quarter: 2011Q3

REPORT INFORMATION
  Report Type: 
  Country: None (occurrence: None)
  Receive Date: 20110812
  Receipt Date: 20100831
  Transmission Date: 20111222
  Serious: Yes (Other)
  Sender: FDA-Public Use
  Company Number: US-BAYER-201033159NA

PATIENT
  Sex: Female

DRUGS (1)
  1. MAGNEVIST [Suspect]

REACTIONS (1)
  - NEPHROGENIC SYSTEMIC FIBROSIS [None]
